FAERS Safety Report 7344731-2 (Version None)
Quarter: 2011Q1

REPORT INFORMATION
  Report Type: 
  Country: None (occurrence: None)
  Receive Date: 20110310
  Receipt Date: 20110302
  Transmission Date: 20110831
  Serious: Yes (Other)
  Sender: FDA-Public Use
  Company Number: PHHO2011AU01947

PATIENT

DRUGS (8)
  1. GLUCOSAMINE [Concomitant]
  2. SPIRONOLACTONE [Concomitant]
  3. CALTRATE [Concomitant]
  4. PANTOPRAZOLE [Concomitant]
  5. LETROZOLE [Suspect]
     Indication: BREAST CANCER
     Dosage: 2.5 MG, QD
     Route: 048
     Dates: start: 20090601
  6. PINDOLOL [Concomitant]
  7. ASPIRIN [Concomitant]
  8. SIMVASTATIN [Concomitant]

REACTIONS (1)
  - LYMPHOCYTIC LYMPHOMA [None]
